FAERS Safety Report 16477649 (Version 2)
Quarter: 2019Q3

REPORT INFORMATION
  Report Type: Spontaneous
  Country: IT (occurrence: IT)
  Receive Date: 20190626
  Receipt Date: 20190706
  Transmission Date: 20191004
  Serious: Yes (Hospitalization, Other)
  Sender: FDA-Public Use
  Company Number: IT-AUROBINDO-AUR-APL-2019-037076

PATIENT

DRUGS (15)
  1. PIPERACILLINA/TAZOBACTAMAUROBINDO4/0.5GPOWDERFORSOLUTIONFORINJECTION [Suspect]
     Active Substance: PIPERACILLIN SODIUM\TAZOBACTAM SODIUM
     Indication: PNEUMONITIS
     Dosage: 12 GRAM, ONCE A DAY
     Route: 042
     Dates: start: 20190605, end: 20190610
  2. LINEZOLID SOLUTION FOR INFUSION [Suspect]
     Active Substance: LINEZOLID
     Indication: PNEUMONITIS
     Dosage: 1200 MILLIGRAM, ONCE A DAY
     Route: 042
     Dates: start: 20190605, end: 20190610
  3. CLEXANE [Concomitant]
     Active Substance: ENOXAPARIN SODIUM
     Indication: EMBOLISM VENOUS
     Dosage: UNK
     Route: 058
     Dates: start: 20190502, end: 20190614
  4. JUMEX [Concomitant]
     Active Substance: SELEGILINE HYDROCHLORIDE
     Indication: PARKINSON^S DISEASE
     Dosage: 5 MILLIGRAM, ONCE A DAY
     Route: 048
     Dates: start: 20190517, end: 20190606
  5. LOPERAMIDE [Concomitant]
     Active Substance: LOPERAMIDE
     Indication: DIARRHOEA
     Dosage: 4 MILLIGRAM, ONCE A DAY
     Route: 048
     Dates: start: 20190606, end: 20190612
  6. BINOCRIT [Concomitant]
     Active Substance: ERYTHROPOIETIN
     Indication: NEPHROGENIC ANAEMIA
     Dosage: UNK
     Route: 058
     Dates: start: 20190516, end: 20190614
  7. LEVOTIROXINA TEVA [Concomitant]
     Indication: HYPOTHYROIDISM
     Dosage: 100 MICROGRAM, ONCE A DAY
     Route: 048
     Dates: start: 20190502, end: 20190614
  8. METFORMINA [Concomitant]
     Active Substance: METFORMIN HYDROCHLORIDE
     Indication: DIABETES MELLITUS
     Dosage: 1500 MILLIGRAM, ONCE A DAY
     Route: 048
     Dates: start: 20190523, end: 20190606
  9. AMBROXOL DOROM [Concomitant]
     Indication: PRODUCT USED FOR UNKNOWN INDICATION
     Dosage: 15 MILLIGRAM, ONCE A DAY
     Route: 055
     Dates: start: 20190523, end: 20190614
  10. VANCOMICINA HIKMA [Concomitant]
     Active Substance: VANCOMYCIN HYDROCHLORIDE
     Indication: INFECTION
     Dosage: 2 GRAM, ONCE A DAY
     Route: 048
     Dates: start: 20190529, end: 20190607
  11. ESOMEPRAZOLO EG [Concomitant]
     Indication: GASTROOESOPHAGEAL REFLUX DISEASE
     Dosage: 20 MILLIGRAM, ONCE A DAY
     Route: 048
     Dates: start: 20190502, end: 20190614
  12. CLENIL [Concomitant]
     Active Substance: BECLOMETHASONE DIPROPIONATE
     Indication: ASTHMA
     Dosage: 0.4 MILLIGRAM, ONCE A DAY
     Route: 055
     Dates: start: 20190523, end: 20190614
  13. BRILIQUE [Concomitant]
     Active Substance: TICAGRELOR
     Indication: ARTERIAL THROMBOSIS
     Dosage: 180 MILLIGRAM, ONCE A DAY
     Route: 048
     Dates: start: 20190502, end: 20190614
  14. ISORAM [Concomitant]
     Indication: PRODUCT USED FOR UNKNOWN INDICATION
     Dosage: UNK
     Route: 042
     Dates: start: 20190516, end: 20190606
  15. CARDICOR [Concomitant]
     Active Substance: BISOPROLOL
     Indication: CARDIAC FAILURE CHRONIC
     Dosage: 5 MILLIGRAM, ONCE A DAY
     Route: 048
     Dates: start: 20190517, end: 20190614

REACTIONS (3)
  - Drug ineffective [Recovering/Resolving]
  - Respiratory failure [Recovering/Resolving]
  - Pneumonitis [Recovering/Resolving]

NARRATIVE: CASE EVENT DATE: 20190606
